FAERS Safety Report 8634684 (Version 3)
Quarter: 2012Q4

REPORT INFORMATION
  Report Type: 
  Country: US (occurrence: US)
  Receive Date: 20120626
  Receipt Date: 20120918
  Transmission Date: 20130627
  Serious: No
  Sender: FDA-Public Use
  Company Number: PHEH2012US012433

PATIENT
  Sex: Male

DRUGS (3)
  1. GILENYA [Suspect]
     Indication: MULTIPLE SCLEROSIS
     Dosage: 0.5 mg, QD
     Route: 048
     Dates: start: 20120106
  2. GILENYA [Suspect]
     Dosage: 10 mg, daily
     Route: 048
  3. UNSPECIFIED INGREDIENT [Concomitant]

REACTIONS (3)
  - Clumsiness [Unknown]
  - Pain [Unknown]
  - Overdose [Unknown]
